FAERS Safety Report 5905467-5 (Version None)
Quarter: 2008Q4

REPORT INFORMATION
  Report Type: 
  Country: None (occurrence: None)
  Receive Date: 20081001
  Receipt Date: 20081001
  Transmission Date: 20090506
  Serious: No
  Sender: FDA-Public Use
  Company Number: None

PATIENT
  Sex: Male
  Weight: 68.9 kg

DRUGS (2)
  1. CISPLATIN [Suspect]
     Dosage: 190 MG
     Dates: end: 20080923
  2. ERBITUX [Suspect]
     Dosage: 460 MG
     Dates: end: 20080923

REACTIONS (4)
  - BREAKTHROUGH PAIN [None]
  - CANDIDIASIS [None]
  - DRUG INEFFECTIVE [None]
  - MUCOSAL INFLAMMATION [None]
